FAERS Safety Report 20677255 (Version 2)
Quarter: 2022Q3

REPORT INFORMATION
  Report Type: Spontaneous
  Country: IT (occurrence: IT)
  Receive Date: 20220406
  Receipt Date: 20220920
  Transmission Date: 20221027
  Serious: Yes (Other)
  Sender: FDA-Public Use
  Company Number: IT-CLOVIS ONCOLOGY-CLO-2022-000421

PATIENT

DRUGS (2)
  1. RUBRACA [Suspect]
     Active Substance: RUCAPARIB CAMSYLATE
     Indication: Ovarian epithelial cancer stage III
     Dosage: 600 MILLIGRAM, QD
     Route: 048
     Dates: start: 20211029, end: 20220215
  2. RUBRACA [Suspect]
     Active Substance: RUCAPARIB CAMSYLATE
     Dosage: DRUG RESTART WITH LOW DOSAGE

REACTIONS (3)
  - Renal impairment [Recovering/Resolving]
  - Hepatic function abnormal [Recovering/Resolving]
  - Blood creatinine increased [Recovering/Resolving]

NARRATIVE: CASE EVENT DATE: 20220215
